FAERS Safety Report 8787229 (Version 1)
Quarter: 2012Q4

REPORT INFORMATION
  Report Type: 
  Country: DK (occurrence: DK)
  Receive Date: 20120914
  Receipt Date: 20120914
  Transmission Date: 20130627
  Serious: Yes (Other)
  Sender: FDA-Public Use
  Company Number: DK-ELI_LILLY_AND_COMPANY-DK201206005651

PATIENT
  Age: 79 Year
  Sex: Female

DRUGS (7)
  1. FORSTEO [Suspect]
     Indication: OSTEOPOROSIS
     Dosage: UNK
     Dates: start: 20110124
  2. FORSTEO [Suspect]
     Dosage: UNK, each evening
  3. AMLODIPIN                          /00972401/ [Concomitant]
     Dosage: UNK
  4. CENTYL [Concomitant]
     Dosage: UNK
     Dates: end: 201107
  5. CALCIUM CHLORIDE                   /00203801/ [Concomitant]
     Dosage: UNK
     Dates: end: 201107
  6. VITAMIN D [Concomitant]
  7. PARACETAMOL [Concomitant]
     Dosage: 2 DF, qd

REACTIONS (8)
  - Hypercalcaemia of malignancy [Unknown]
  - Headache [Recovered/Resolved]
  - Dizziness [Recovered/Resolved]
  - Nausea [Recovered/Resolved]
  - Blood alkaline phosphatase increased [Not Recovered/Not Resolved]
  - Hot flush [Recovered/Resolved]
  - Weight decreased [Unknown]
  - Blood albumin abnormal [Recovered/Resolved]
